FAERS Safety Report 4459216-0 (Version None)
Quarter: 2004Q3

REPORT INFORMATION
  Report Type: 
  Country: None (occurrence: None)
  Receive Date: 20040920
  Receipt Date: 20040920
  Transmission Date: 20050211
  Serious: Yes (Life-Threatening)
  Sender: FDA-Public Use
  Company Number: None

PATIENT
  Age: 40 Year
  Sex: Female
  Weight: 55 kg

DRUGS (3)
  1. WARFARIN SODIUM [Suspect]
     Indication: CENTRAL VENOUS CATHETERISATION
     Dosage: 1 MG PO QD
     Route: 048
     Dates: end: 20040507
  2. FENTANYL [Concomitant]
  3. HYDROMORPHONE HCL [Concomitant]

REACTIONS (8)
  - COAGULOPATHY [None]
  - CONFUSIONAL STATE [None]
  - DEHYDRATION [None]
  - HAEMOGLOBIN DECREASED [None]
  - HAEMORRHAGE [None]
  - METASTASES TO CENTRAL NERVOUS SYSTEM [None]
  - NAUSEA [None]
  - VOMITING [None]
